FAERS Safety Report 11111803 (Version 1)
Quarter: 2015Q2

REPORT INFORMATION
  Report Type: Spontaneous
  Country: US (occurrence: None)
  Receive Date: 20150512
  Receipt Date: 20150512
  Transmission Date: 20150821
  Serious: No
  Sender: FDA-Public Use
  Company Number: None

PATIENT
  Age: 42 Year
  Sex: Male
  Weight: 136.08 kg

DRUGS (6)
  1. PENNSAID [Suspect]
     Active Substance: DICLOFENAC SODIUM
     Indication: OSTEOARTHRITIS
     Dosage: 2 PUMPS??APPLIED TO A SURGACE, USUALLY THE SKIN
     Route: 061
     Dates: start: 20150408, end: 20150511
  2. TEMAZEPAM. [Concomitant]
     Active Substance: TEMAZEPAM
  3. PENNSAID [Suspect]
     Active Substance: DICLOFENAC SODIUM
     Indication: CHONDROPATHY
     Dosage: 2 PUMPS??APPLIED TO A SURGACE, USUALLY THE SKIN
     Route: 061
     Dates: start: 20150408, end: 20150511
  4. CYMBALTA [Concomitant]
     Active Substance: DULOXETINE HYDROCHLORIDE
  5. ALPRAZOLAM. [Concomitant]
     Active Substance: ALPRAZOLAM
  6. MELOXICAM. [Concomitant]
     Active Substance: MELOXICAM

REACTIONS (4)
  - Poor quality sleep [None]
  - Headache [None]
  - Nightmare [None]
  - Musculoskeletal stiffness [None]

NARRATIVE: CASE EVENT DATE: 20150508
